FAERS Safety Report 8395745 (Version 4)
Quarter: 2013Q4

REPORT INFORMATION
  Report Type: Spontaneous
  Country: US (occurrence: US)
  Receive Date: 20120208
  Receipt Date: 20131108
  Transmission Date: 20140711
  Serious: Yes (Other)
  Sender: FDA-Public Use
  Company Number: US-BAYER-2012-010014

PATIENT
  Age: 24 Year
  Sex: Female
  Weight: 58.96 kg

DRUGS (4)
  1. YAZ [Suspect]
     Dosage: UNK
     Dates: end: 2006
  2. YASMIN [Suspect]
     Dosage: UNK
     Dates: end: 200807
  3. ACIPHEX [Concomitant]
     Dosage: 20 MG, QD
     Dates: start: 20100514
  4. DORYX [Concomitant]
     Dosage: 100 MG, QD
     Dates: start: 20100521

REACTIONS (9)
  - Cholecystitis chronic [None]
  - Cholelithiasis [None]
  - Pain [None]
  - Emotional distress [None]
  - General physical health deterioration [None]
  - Anxiety [None]
  - General physical health deterioration [None]
  - Oesophageal stenosis [None]
  - Scar [None]
